FAERS Safety Report 14662020 (Version 1)
Quarter: 2018Q1

REPORT INFORMATION
  Report Type: Spontaneous
  Country: FR (occurrence: FR)
  Receive Date: 20180320
  Receipt Date: 20180320
  Transmission Date: 20180509
  Serious: Yes (Other)
  Sender: FDA-Public Use
  Company Number: FR-MERCK KGAA-2044173

PATIENT
  Age: 59 Year
  Sex: Female

DRUGS (1)
  1. NOVOTHYROX [Suspect]
     Active Substance: LEVOTHYROXINE SODIUM
     Indication: PRODUCT USED FOR UNKNOWN INDICATION

REACTIONS (25)
  - Crying [None]
  - Social problem [None]
  - Fatigue [None]
  - Apathy [None]
  - Vertigo [None]
  - Pain [None]
  - Salivary hypersecretion [None]
  - Dizziness [None]
  - Gastrointestinal disorder [None]
  - Abdominal distension [None]
  - Tongue disorder [None]
  - Oral discomfort [None]
  - Anxiety [None]
  - Confusional state [None]
  - Depressed mood [None]
  - Impaired work ability [None]
  - Abdominal pain upper [None]
  - Diarrhoea [None]
  - Loss of personal independence in daily activities [None]
  - Depression [None]
  - Cerebral disorder [None]
  - Asthenia [None]
  - Arrhythmia [None]
  - Discomfort [None]
  - Tension [None]
